FAERS Safety Report 15329266 (Version 1)
Quarter: 2018Q3

REPORT INFORMATION
  Report Type: Spontaneous
  Country: JP (occurrence: JP)
  Receive Date: 20180829
  Receipt Date: 20180829
  Transmission Date: 20181010
  Serious: Yes (Hospitalization, Other)
  Sender: FDA-Public Use
  Company Number: JP-GLAXOSMITHKLINE-B0628411A

PATIENT
  Age: 28 Year
  Sex: Female
  Weight: 41 kg

DRUGS (7)
  1. GASTER [Suspect]
     Active Substance: FAMOTIDINE
     Indication: GASTRITIS PROPHYLAXIS
     Route: 048
     Dates: start: 20100116
  2. LAMOTRIGINE. [Suspect]
     Active Substance: LAMOTRIGINE
     Indication: EPILEPSY
     Route: 048
     Dates: start: 20100104, end: 20100117
  3. CONSTAN [Suspect]
     Active Substance: ALPRAZOLAM
     Indication: EPILEPSY
     Route: 048
     Dates: start: 2002
  4. MYSTAN [Concomitant]
     Active Substance: CLOBAZAM
     Indication: EPILEPSY
     Route: 048
     Dates: start: 2002, end: 2002
  5. TEGRETOL [Suspect]
     Active Substance: CARBAMAZEPINE
     Indication: EPILEPSY
     Route: 048
     Dates: start: 1990, end: 1990
  6. PRIMIDONE. [Suspect]
     Active Substance: PRIMIDONE
     Indication: EPILEPSY
     Route: 048
     Dates: start: 2002
  7. TEGRETOL [Suspect]
     Active Substance: CARBAMAZEPINE
     Indication: EPILEPSY
     Route: 048
     Dates: start: 1990

REACTIONS (22)
  - Arthralgia [Unknown]
  - Blood creatine phosphokinase increased [Unknown]
  - Influenza [Unknown]
  - Corneal erosion [Unknown]
  - Platelet count decreased [Unknown]
  - Lip erosion [Unknown]
  - Stevens-Johnson syndrome [Recovered/Resolved]
  - Disseminated intravascular coagulation [Unknown]
  - Erythema [Unknown]
  - Mucous membrane disorder [Unknown]
  - Eyelid oedema [Unknown]
  - Conjunctival hyperaemia [Unknown]
  - Rash [Recovered/Resolved]
  - Lymphadenopathy [Unknown]
  - Malaise [Unknown]
  - Pyrexia [Recovered/Resolved]
  - Marrow hyperplasia [Unknown]
  - Peripheral swelling [Unknown]
  - Genital haemorrhage [Unknown]
  - Liver disorder [Recovering/Resolving]
  - Histiocytosis haematophagic [Unknown]
  - Vision blurred [Unknown]

NARRATIVE: CASE EVENT DATE: 20100113
